FAERS Safety Report 19048312 (Version 1)
Quarter: 2021Q1

REPORT INFORMATION
  Report Type: Report from Study
  Country: US (occurrence: US)
  Receive Date: 20210324
  Receipt Date: 20210324
  Transmission Date: 20210420
  Serious: Yes (Death)
  Sender: FDA-Public Use
  Company Number: US-JNJFOC-20210339788

PATIENT
  Age: 63 Year
  Sex: Male

DRUGS (2)
  1. CYCLOPHOSPHAMIDE. [Concomitant]
     Active Substance: CYCLOPHOSPHAMIDE
  2. REMICADE [Suspect]
     Active Substance: INFLIXIMAB
     Indication: PNEUMONITIS
     Route: 042

REACTIONS (5)
  - Pseudomonal bacteraemia [Fatal]
  - Off label use [Unknown]
  - Enterococcal infection [Fatal]
  - Pneumonia fungal [Fatal]
  - Product use in unapproved indication [Unknown]
